FAERS Safety Report 13581659 (Version 1)
Quarter: 2017Q2

REPORT INFORMATION
  Report Type: Spontaneous
  Country: US (occurrence: US)
  Receive Date: 20170525
  Receipt Date: 20170525
  Transmission Date: 20170830
  Serious: Yes (Hospitalization)
  Sender: FDA-Public Use
  Company Number: US-BAYER-2017-096913

PATIENT
  Age: 11 Year
  Sex: Female

DRUGS (2)
  1. CLARITIN [Suspect]
     Active Substance: LORATADINE
     Dosage: UNK
  2. CLARITIN [Suspect]
     Active Substance: LORATADINE
     Dosage: UNK

REACTIONS (5)
  - Retching [Recovering/Resolving]
  - Crying [Recovering/Resolving]
  - Vomiting projectile [Recovering/Resolving]
  - Respiration abnormal [Recovering/Resolving]
  - Bronchitis [Recovering/Resolving]
